FAERS Safety Report 6602480-X (Version None)
Quarter: 2010Q1

REPORT INFORMATION
  Report Type: 
  Country: None (occurrence: None)
  Receive Date: 20100225
  Receipt Date: 20100219
  Transmission Date: 20100710
  Serious: Yes (Other)
  Sender: FDA-Public Use
  Company Number: BR-ABBOTT-10P-020-0627728-00

PATIENT
  Sex: Female
  Weight: 80 kg

DRUGS (10)
  1. HUMIRA [Suspect]
     Indication: RHEUMATOID ARTHRITIS
     Route: 058
  2. PREDNISONE TAB [Concomitant]
     Indication: RHEUMATOID ARTHRITIS
     Route: 048
     Dates: start: 20070101
  3. ENALAPRIL MALEATE [Concomitant]
     Indication: HYPERTENSION
     Route: 048
  4. METHYLDOPA [Concomitant]
     Indication: HYPERTENSION
     Route: 048
     Dates: start: 20090101
  5. OMEPRAZOLE [Concomitant]
     Indication: GASTRIC DISORDER
     Route: 048
     Dates: start: 20080101
  6. OMEPRAZOLE [Concomitant]
     Indication: GASTROOESOPHAGEAL REFLUX DISEASE
  7. FUROSEMIDE [Concomitant]
     Indication: FLUID RETENTION
     Route: 048
     Dates: start: 20090101
  8. AMLODIPINE [Concomitant]
     Indication: HYPERTENSION
     Route: 048
  9. METHOTREXATE [Concomitant]
     Indication: RHEUMATOID ARTHRITIS
     Route: 048
     Dates: start: 20070101
  10. VERTIGIUM [Concomitant]
     Indication: LABYRINTHITIS
     Route: 048
     Dates: start: 20091001

REACTIONS (11)
  - AMNESIA [None]
  - BLOOD PRESSURE FLUCTUATION [None]
  - CONVULSION [None]
  - DIABETES MELLITUS [None]
  - DRUG INEFFECTIVE [None]
  - FATIGUE [None]
  - LIVER DISORDER [None]
  - MOVEMENT DISORDER [None]
  - MYALGIA [None]
  - NECK PAIN [None]
  - VISUAL ACUITY REDUCED [None]
